FAERS Safety Report 25112950 (Version 1)
Quarter: 2025Q1

REPORT INFORMATION
  Report Type: Spontaneous
  Country: US (occurrence: US)
  Receive Date: 20250324
  Receipt Date: 20250324
  Transmission Date: 20250409
  Serious: Yes (Other)
  Sender: PROCTER AND GAMBLE
  Company Number: US-PROCTER+GAMBLE-PH25002014

PATIENT

DRUGS (2)
  1. DIPHENHYDRAMINE HYDROCHLORIDE [Suspect]
     Active Substance: DIPHENHYDRAMINE HYDROCHLORIDE
  2. KETAMINE [Concomitant]
     Active Substance: KETAMINE

REACTIONS (4)
  - Suicide attempt [Unknown]
  - Intentional overdose [Unknown]
  - Vomiting [Unknown]
  - Intentional product use issue [Unknown]
